FAERS Safety Report 16120349 (Version 2)
Quarter: 2019Q2

REPORT INFORMATION
  Report Type: Report from Study
  Country: AR (occurrence: AR)
  Receive Date: 20190326
  Receipt Date: 20190417
  Transmission Date: 20190711
  Serious: Yes (Other)
  Sender: FDA-Public Use
  Company Number: PHHY2019AR064338

PATIENT
  Sex: Male

DRUGS (1)
  1. DIOVAN D [Suspect]
     Active Substance: HYDROCHLOROTHIAZIDE\VALSARTAN
     Indication: HYPERTENSION
     Dosage: 1 DF, QD (12.5 OT HYDROCHLOROTHIAZIDE, 320 OT VALSARTAN), 13 YEARS AGO
     Route: 065

REACTIONS (3)
  - Coronary artery occlusion [Unknown]
  - Myocardial ischaemia [Unknown]
  - Calcification of muscle [Unknown]
